FAERS Safety Report 7346132-X (Version None)
Quarter: 2011Q1

REPORT INFORMATION
  Report Type: 
  Country: None (occurrence: None)
  Receive Date: 20110311
  Receipt Date: 20100909
  Transmission Date: 20110831
  Serious: Yes (Hospitalization)
  Sender: FDA-Public Use
  Company Number: US-BAYER-201028183NA

PATIENT
  Sex: Female
  Weight: 52.154 kg

DRUGS (5)
  1. PREVACID [Concomitant]
  2. OCELLA [Suspect]
     Dosage: UNK UNK, QD
     Route: 048
  3. YASMIN [Suspect]
     Route: 048
     Dates: start: 20030501, end: 20090901
  4. YAZ [Suspect]
     Route: 048
     Dates: start: 20030501, end: 20090901
  5. LORATADINE [Concomitant]

REACTIONS (5)
  - VOMITING [None]
  - NAUSEA [None]
  - CHEST PAIN [None]
  - CHOLELITHIASIS [None]
  - CHOLECYSTITIS CHRONIC [None]
